FAERS Safety Report 13901555 (Version 4)
Quarter: 2019Q1

REPORT INFORMATION
  Report Type: Spontaneous
  Country: CA (occurrence: CA)
  Receive Date: 20170824
  Receipt Date: 20190322
  Transmission Date: 20190417
  Serious: Yes (Death, Disabling, Other)
  Sender: FDA-Public Use
  Company Number: CA-PFIZER INC-2017360149

PATIENT
  Age: 47 Year
  Sex: Female

DRUGS (29)
  1. VITAMIN D [Concomitant]
     Active Substance: CHOLECALCIFEROL
     Dosage: 1000 IU, 3X/DAY
     Route: 048
  2. GENOTROPIN [Suspect]
     Active Substance: SOMATROPIN
     Indication: GROWTH HORMONE DEFICIENCY
     Dosage: 0.6 MG, DAILY
     Route: 058
     Dates: start: 201408
  3. WELLBUTRIN [Concomitant]
     Active Substance: BUPROPION HYDROCHLORIDE
     Dosage: 150 MG, 2X/DAY
     Route: 048
  4. PENTAMIDINE [Concomitant]
     Active Substance: PENTAMIDINE
     Dosage: 300 MG, UNK
     Route: 050
  5. BETAMETHASONE VALERATE. [Concomitant]
     Active Substance: BETAMETHASONE VALERATE
     Dosage: UNK
     Route: 061
  6. ZOPLICONE [Concomitant]
     Active Substance: ZOPICLONE
     Dosage: 7 MG, HS, 1X/DAY
     Route: 065
  7. NAPROXEN EC [Concomitant]
     Active Substance: NAPROXEN
     Dosage: 500 MG, 2X/DAY
     Route: 048
  8. NEXIUM [Concomitant]
     Active Substance: ESOMEPRAZOLE MAGNESIUM
     Dosage: 40 MG, 2X/DAY
     Route: 048
  9. LEVOTHYROXINE. [Concomitant]
     Active Substance: LEVOTHYROXINE
     Dosage: 0.125 MG, 1X/DAY
     Route: 048
  10. CALCIUM CARBONATE. [Concomitant]
     Active Substance: CALCIUM CARBONATE
     Dosage: 650 MG, 1X/DAY
     Route: 065
  11. ACLASTA [Concomitant]
     Active Substance: ZOLEDRONIC ACID
     Dosage: UNK, EVERY YEAR
     Route: 042
  12. VALSARTAN. [Concomitant]
     Active Substance: VALSARTAN
     Dosage: 100 MG, 1X/DAY
     Route: 048
  13. ASA EC [Concomitant]
     Active Substance: ASPIRIN
     Dosage: 81 MG, 1X/DAY
     Route: 048
  14. PENTAMIDINE [Concomitant]
     Active Substance: PENTAMIDINE
     Dosage: 300 MG, EVERY 6 WEEKS
     Route: 055
  15. SLOW K [Concomitant]
     Active Substance: POTASSIUM CHLORIDE
     Dosage: 600 MG, 2X/DAY
     Route: 048
  16. DESMOPRESSIN [Concomitant]
     Active Substance: DESMOPRESSIN
     Dosage: 0.05 MG, 2X/DAY PRN (AS NEEDED)
     Route: 048
  17. LIPIDIL SUPRA [Concomitant]
     Active Substance: FENOFIBRATE
     Dosage: 160 MG, 1X/DAY
     Route: 048
  18. PRISTIQ EXTENDED-RELEASE [Concomitant]
     Active Substance: DESVENLAFAXINE SUCCINATE
     Dosage: 50 MG, HS (BEFORE SLEEP), 1X/DAY
     Route: 048
  19. FERAMAX [Concomitant]
     Active Substance: IRON\POLYSACCHARIDES
     Dosage: 150 MG, 1X/DAY
     Route: 048
  20. VITAMIN C [Concomitant]
     Active Substance: ASCORBIC ACID
     Dosage: UNK UNK, 1X/DAY
     Route: 048
  21. DICLOFENAC [Concomitant]
     Active Substance: DICLOFENAC
     Dosage: UNK
     Route: 065
  22. ECTOSONE [Concomitant]
     Dosage: UNK
     Route: 061
  23. HYDROCORTISONE. [Concomitant]
     Active Substance: HYDROCORTISONE
     Dosage: 50 MG, 1X/DAY
     Route: 048
     Dates: start: 20140728
  24. IMURAN [Concomitant]
     Active Substance: AZATHIOPRINE
     Dosage: 50 MG, 2X/DAY
     Route: 048
     Dates: start: 20140712
  25. RANITIDINE. [Concomitant]
     Active Substance: RANITIDINE
     Dosage: 150 MG, 2X/DAY
     Route: 048
  26. TRAZODONE [Concomitant]
     Active Substance: TRAZODONE HYDROCHLORIDE
     Dosage: 100 MG, HS (BEFORE SLEEP), 1X/DAY
     Route: 048
  27. PHOSPHATE [Concomitant]
     Active Substance: UNSPECIFIED INGREDIENT
     Dosage: 500 MG, 4X/DAY
     Route: 048
  28. FOLATE [Concomitant]
     Active Substance: FOLATE SODIUM
     Dosage: 5 MG, 1X/DAY
     Route: 048
  29. MAGNESIUM [Concomitant]
     Active Substance: MAGNESIUM
     Dosage: 250 MG, 1X/DAY
     Route: 048

REACTIONS (2)
  - Death [Fatal]
  - Spinal cord injury [Not Recovered/Not Resolved]

NARRATIVE: CASE EVENT DATE: 201702
